FAERS Safety Report 8711989 (Version 3)
Quarter: 2012Q4

REPORT INFORMATION
  Report Type: 
  Country: US (occurrence: US)
  Receive Date: 20120807
  Receipt Date: 20120913
  Transmission Date: 20130627
  Serious: Yes (Other)
  Sender: FDA-Public Use
  Company Number: CHPA2012US014623

PATIENT
  Age: 77 None
  Sex: Male

DRUGS (1)
  1. EX-LAX MAX STR LAX PILLS SENNA [Suspect]
     Indication: CONSTIPATION
     Dosage: 1- 4 DF at a time each day
     Route: 048
     Dates: start: 201201, end: 20120618

REACTIONS (6)
  - Hernia [Recovered/Resolved]
  - Bedridden [Unknown]
  - Swelling [Recovered/Resolved]
  - Drug ineffective [Recovered/Resolved]
  - Incorrect dose administered [Recovered/Resolved]
  - Incorrect drug administration duration [Recovered/Resolved]
